FAERS Safety Report 17209650 (Version 1)
Quarter: 2019Q4

REPORT INFORMATION
  Report Type: Spontaneous
  Country: BE (occurrence: BE)
  Receive Date: 20191227
  Receipt Date: 20191227
  Transmission Date: 20200122
  Serious: No
  Sender: FDA-Public Use
  Company Number: BE-TOLMAR, INC.-19BE000867

PATIENT
  Sex: Male

DRUGS (1)
  1. ELIGARD [Suspect]
     Active Substance: LEUPROLIDE ACETATE
     Indication: PROSTATE CANCER METASTATIC
     Dosage: 45 MG
     Route: 065
     Dates: start: 201710

REACTIONS (3)
  - Wrong technique in product usage process [Unknown]
  - Syringe issue [Unknown]
  - Intercepted product preparation error [Unknown]
